FAERS Safety Report 17354697 (Version 2)
Quarter: 2020Q1

REPORT INFORMATION
  Report Type: Spontaneous
  Country: PL (occurrence: PL)
  Receive Date: 20200131
  Receipt Date: 20200212
  Transmission Date: 20200409
  Serious: Yes (Hospitalization, Other)
  Sender: FDA-Public Use
  Company Number: PL-MYLANLABS-2020M1010736

PATIENT
  Age: 59 Year
  Sex: Female

DRUGS (4)
  1. MYCOPHENOLATE MOFETIL. [Suspect]
     Active Substance: MYCOPHENOLATE MOFETIL
     Indication: IMMUNOSUPPRESSANT DRUG THERAPY
     Dosage: UNK
  2. PREDNISONE. [Suspect]
     Active Substance: PREDNISONE
     Indication: IMMUNOSUPPRESSANT DRUG THERAPY
     Dosage: UNK
  3. ENVARSUS XR [Suspect]
     Active Substance: TACROLIMUS
     Indication: IMMUNOSUPPRESSANT DRUG THERAPY
     Dosage: UNK
  4. ENVARSUS XR [Suspect]
     Active Substance: TACROLIMUS
     Indication: RENAL TRANSPLANT
     Dosage: UNK

REACTIONS (4)
  - Postoperative wound infection [Recovered/Resolved]
  - Wound dehiscence [Recovered/Resolved]
  - Wound necrosis [Recovered/Resolved]
  - Wound sepsis [Recovered/Resolved]

NARRATIVE: CASE EVENT DATE: 201906
